FAERS Safety Report 4935013-4 (Version None)
Quarter: 2006Q1

REPORT INFORMATION
  Report Type: 
  Country: None (occurrence: None)
  Receive Date: 20060306
  Receipt Date: 20060306
  Transmission Date: 20060701
  Serious: No
  Sender: FDA-Public Use
  Company Number: None

PATIENT
  Age: 26 Year
  Sex: Male
  Weight: 78.6 kg

DRUGS (1)
  1. OFLOXACIN [Suspect]
     Indication: CONJUNCTIVITIS
     Dosage: 5 DROPS
     Dates: start: 20060219, end: 20060222

REACTIONS (3)
  - CONJUNCTIVAL OEDEMA [None]
  - LACRIMATION INCREASED [None]
  - PAIN [None]
